FAERS Safety Report 4450073-5 (Version None)
Quarter: 2004Q3

REPORT INFORMATION
  Report Type: 
  Country: None (occurrence: None)
  Receive Date: 20040915
  Receipt Date: 20040812
  Transmission Date: 20050211
  Serious: Yes (Hospitalization)
  Sender: FDA-Public Use
  Company Number: FR-ROCHE-377577

PATIENT
  Age: 64 Year
  Sex: Male
  Weight: 72 kg

DRUGS (9)
  1. ROVALCYTE [Suspect]
     Indication: DRUG USE FOR UNKNOWN INDICATION
     Route: 048
     Dates: start: 20040510, end: 20040702
  2. CELLCEPT [Suspect]
     Indication: DRUG USE FOR UNKNOWN INDICATION
     Route: 048
     Dates: start: 20040505, end: 20040705
  3. BACTRIM [Suspect]
     Indication: DRUG USE FOR UNKNOWN INDICATION
     Route: 048
     Dates: start: 20040505, end: 20040628
  4. SOLUPRED [Concomitant]
  5. MOPRAL [Concomitant]
  6. TENORMIN [Concomitant]
  7. TARDYFERON [Concomitant]
  8. FELODIPINE [Concomitant]
  9. CALCIDIA [Concomitant]

REACTIONS (2)
  - AGRANULOCYTOSIS [None]
  - HYPERTHERMIA [None]
